FAERS Safety Report 17765727 (Version 2)
Quarter: 2020Q4

REPORT INFORMATION
  Report Type: Spontaneous
  Country: US (occurrence: US)
  Receive Date: 20200511
  Receipt Date: 20201019
  Transmission Date: 20210113
  Serious: No
  Sender: FDA-Public Use
  Company Number: US-GLAXOSMITHKLINE-US2020077687

PATIENT
  Sex: Female

DRUGS (3)
  1. NUCALA [Suspect]
     Active Substance: MEPOLIZUMAB
     Indication: ASTHMA
     Dosage: UNK
     Route: 058
     Dates: start: 20200430
  2. PREDNISONE. [Concomitant]
     Active Substance: PREDNISONE
     Indication: PRODUCT USED FOR UNKNOWN INDICATION
     Dosage: UNK
     Route: 065
  3. NUCALA [Suspect]
     Active Substance: MEPOLIZUMAB
     Indication: ASTHMA
     Dosage: 100 MG, Z (1X A MONTH)
     Route: 058

REACTIONS (11)
  - Gait disturbance [Unknown]
  - Nasopharyngitis [Unknown]
  - Dyspnoea [Unknown]
  - Back disorder [Unknown]
  - Chest discomfort [Unknown]
  - Polyp [Unknown]
  - Surgery [Not Recovered/Not Resolved]
  - Asthenia [Unknown]
  - Upper-airway cough syndrome [Unknown]
  - Illness [Unknown]
  - Social problem [Unknown]
